FAERS Safety Report 6377281-0 (Version None)
Quarter: 2009Q3

REPORT INFORMATION
  Report Type: 
  Country: None (occurrence: None)
  Receive Date: 20090924
  Receipt Date: 20090924
  Transmission Date: 20100115
  Serious: Yes (Other)
  Sender: FDA-Public Use
  Company Number: None

PATIENT
  Age: 66 Year
  Sex: Male
  Weight: 72.1 kg

DRUGS (2)
  1. CAPECITABINE [Suspect]
     Indication: PANCREATIC CARCINOMA
     Dosage: 2000 MG BID X 7 DAYS Q2WKS PO
     Route: 048
     Dates: start: 20090910, end: 20090915
  2. GEMCITABINE [Suspect]
     Indication: PANCREATIC CARCINOMA
     Dosage: 1910 MG Q 2 WKS IV ON DAY 1 OF EACH CYCLE
     Route: 042
     Dates: start: 20090910

REACTIONS (7)
  - CONFUSIONAL STATE [None]
  - DIARRHOEA [None]
  - DISORIENTATION [None]
  - FEBRILE NEUTROPENIA [None]
  - HICCUPS [None]
  - HYPONATRAEMIA [None]
  - POLYDIPSIA [None]
